FAERS Safety Report 18749773 (Version 2)
Quarter: 2021Q1

REPORT INFORMATION
  Report Type: Spontaneous
  Country: BR (occurrence: BR)
  Receive Date: 20210117
  Receipt Date: 20210122
  Transmission Date: 20210419
  Serious: Yes (Other)
  Sender: FDA-Public Use
  Company Number: BR-CELLTRION INC.-2021BR000189

PATIENT

DRUGS (1)
  1. REMSIMA [Suspect]
     Active Substance: INFLIXIMAB
     Indication: SARCOIDOSIS
     Dosage: UNK
     Route: 065
     Dates: start: 2013

REACTIONS (12)
  - Brain injury [Unknown]
  - Off label use [Unknown]
  - COVID-19 [Unknown]
  - Pruritus [Unknown]
  - Tendonitis [Unknown]
  - Insomnia [Unknown]
  - Blindness unilateral [Unknown]
  - Fatigue [Unknown]
  - Depression [Unknown]
  - Facial paralysis [Unknown]
  - Memory impairment [Unknown]
  - Hypersensitivity [Unknown]

NARRATIVE: CASE EVENT DATE: 202009
